FAERS Safety Report 13449286 (Version 2)
Quarter: 2017Q2

REPORT INFORMATION
  Report Type: Spontaneous
  Country: US (occurrence: US)
  Receive Date: 20170417
  Receipt Date: 20170421
  Transmission Date: 20170830
  Serious: No
  Sender: FDA-Public Use
  Company Number: US-GILEAD-2017-0264470

PATIENT
  Age: 56 Year
  Sex: Female

DRUGS (2)
  1. HARVONI [Suspect]
     Active Substance: LEDIPASVIR\SOFOSBUVIR
     Indication: HEPATITIS C
     Dosage: UNK
     Route: 065
     Dates: start: 201702
  2. ACYCLOVIR                          /00587301/ [Concomitant]
     Active Substance: ACYCLOVIR
     Indication: HERPES VIRUS INFECTION

REACTIONS (14)
  - Eructation [Unknown]
  - Feeling abnormal [Unknown]
  - Headache [Unknown]
  - Abdominal pain upper [Unknown]
  - Abdominal discomfort [Unknown]
  - Fatigue [Unknown]
  - Malaise [Unknown]
  - Herpes virus infection [Unknown]
  - Confusional state [Unknown]
  - Poor quality sleep [Unknown]
  - Memory impairment [Unknown]
  - Product physical issue [Recovered/Resolved]
  - Suspected counterfeit product [Recovered/Resolved]
  - Nausea [Unknown]
